FAERS Safety Report 18037832 (Version 3)
Quarter: 2020Q3

REPORT INFORMATION
  Report Type: Report from Study
  Country: ES (occurrence: ES)
  Receive Date: 20200717
  Receipt Date: 20200729
  Transmission Date: 20201103
  Serious: Yes (Death, Other)
  Sender: FDA-Public Use
  Company Number: ES-BRISTOL-MYERS SQUIBB COMPANY-BMS-2020-056722

PATIENT
  Age: 70 Year
  Sex: Male
  Weight: 69 kg

DRUGS (2)
  1. NIVOLUMAB [Suspect]
     Active Substance: NIVOLUMAB
     Indication: RENAL CELL CARCINOMA
     Dosage: 3 MILLIGRAM/KILOGRAM
     Route: 041
     Dates: start: 20200108, end: 20200108
  2. IPILIMUMAB [Suspect]
     Active Substance: IPILIMUMAB
     Indication: RENAL CANCER STAGE IV
     Dosage: 1 MILLIGRAM/KILOGRAM
     Route: 041
     Dates: start: 20200108, end: 20200108

REACTIONS (4)
  - Autoimmune thyroiditis [Fatal]
  - Multiple organ dysfunction syndrome [Fatal]
  - Myocarditis [Fatal]
  - Myositis [Fatal]

NARRATIVE: CASE EVENT DATE: 20200124
